FAERS Safety Report 8630495 (Version 2)
Quarter: 2013Q3

REPORT INFORMATION
  Report Type: Spontaneous
  Country: US (occurrence: US)
  Receive Date: 20120622
  Receipt Date: 20130724
  Transmission Date: 20140515
  Serious: Yes (Disabling)
  Sender: FDA-Public Use
  Company Number: US-ASTRAZENECA-2012SE36407

PATIENT
  Age: 37 Year
  Sex: Male

DRUGS (12)
  1. NEXIUM [Suspect]
     Indication: GASTROOESOPHAGEAL REFLUX DISEASE
     Route: 048
     Dates: start: 1985
  2. PREVACID [Suspect]
     Route: 065
  3. PREVACID [Suspect]
     Route: 065
  4. ZANTAC [Concomitant]
  5. PEPCID [Concomitant]
  6. TAGAMET [Concomitant]
  7. ROLAIDS [Concomitant]
  8. TUMS [Concomitant]
  9. PEPTO BISMOL [Concomitant]
  10. GAVISCON [Concomitant]
  11. HYDROMORPHONE [Concomitant]
  12. TIZANIDINE [Concomitant]
     Indication: MUSCLE RELAXANT THERAPY

REACTIONS (8)
  - Road traffic accident [Unknown]
  - Back injury [Unknown]
  - Neck injury [Unknown]
  - Osteoporosis [Unknown]
  - Multiple fractures [Unknown]
  - Pain [Unknown]
  - Bone disorder [Unknown]
  - Impaired healing [Unknown]
